FAERS Safety Report 9889267 (Version 2)
Quarter: 2014Q1

REPORT INFORMATION
  Report Type: Spontaneous
  Country: US (occurrence: US)
  Receive Date: 20140211
  Receipt Date: 20140211
  Transmission Date: 20141002
  Serious: Yes (Other)
  Sender: FDA-Public Use
  Company Number: US-GE HEALTHCARE MEDICAL DIAGNOSTICS-OSCN-PR-0905S-0256

PATIENT
  Sex: Female
  Weight: 49 kg

DRUGS (6)
  1. GADOLINIUM (UNSPECIFIED) [Suspect]
     Indication: PRODUCT USED FOR UNKNOWN INDICATION
     Dates: start: 20031001, end: 20031001
  2. GADOLINIUM (UNSPECIFIED) [Suspect]
     Indication: PRODUCT USED FOR UNKNOWN INDICATION
     Dates: start: 20031101, end: 20031101
  3. GADOLINIUM (UNSPECIFIED) [Suspect]
     Indication: PRODUCT USED FOR UNKNOWN INDICATION
     Dates: start: 20031201, end: 20031201
  4. MAGNEVIST [Suspect]
     Indication: PRODUCT USED FOR UNKNOWN INDICATION
     Dates: start: 20021129, end: 20021129
  5. MAGNEVIST [Suspect]
     Indication: OVARIAN MASS
     Dates: start: 20030926, end: 20030926
  6. MAGNEVIST [Suspect]
     Indication: TRANSIENT ISCHAEMIC ATTACK
     Dates: start: 20031216, end: 20031216

REACTIONS (1)
  - Nephrogenic systemic fibrosis [Not Recovered/Not Resolved]
